FAERS Safety Report 6269358-5 (Version None)
Quarter: 2009Q3

REPORT INFORMATION
  Report Type: 
  Country: None (occurrence: None)
  Receive Date: 20090715
  Receipt Date: 20090706
  Transmission Date: 20100115
  Serious: Yes (Other)
  Sender: FDA-Public Use
  Company Number: ES-WATSON-2009-05195

PATIENT
  Age: 46 Year
  Sex: Male

DRUGS (3)
  1. LIDOCAINE HYDROCHLORIDE (WATSON LABORATORIES) [Suspect]
     Indication: LOCAL ANAESTHESIA
     Dosage: 2 CC OF 5% AND THEN10% SPRAY
  2. TRUVADA [Suspect]
     Indication: ACQUIRED IMMUNODEFICIENCY SYNDROME
     Dosage: 200-245 MG/DAY
  3. VIRAMUNE [Suspect]
     Indication: ACQUIRED IMMUNODEFICIENCY SYNDROME
     Dosage: 200 MG DAILY

REACTIONS (3)
  - CONVULSION [None]
  - INHIBITORY DRUG INTERACTION [None]
  - TONIC CLONIC MOVEMENTS [None]
